FAERS Safety Report 6740434-3 (Version None)
Quarter: 2010Q2

REPORT INFORMATION
  Report Type: 
  Country: None (occurrence: None)
  Receive Date: 20100525
  Receipt Date: 20100519
  Transmission Date: 20101027
  Serious: Yes (Hospitalization)
  Sender: FDA-Public Use
  Company Number: FR-WYE-G06149010

PATIENT
  Sex: Male

DRUGS (4)
  1. EFFEXOR XR [Suspect]
     Route: 048
  2. TROPATEPINE HYDROCHLORIDE [Suspect]
     Route: 048
  3. ZYPREXA [Suspect]
     Route: 048
  4. TERALITHE [Suspect]
     Route: 048

REACTIONS (1)
  - ACUTE MYELOID LEUKAEMIA [None]
